FAERS Safety Report 15207011 (Version 2)
Quarter: 2018Q3

REPORT INFORMATION
  Report Type: Report from Study
  Country: None (occurrence: NL)
  Receive Date: 20180727
  Receipt Date: 20180808
  Transmission Date: 20181010
  Serious: Yes (Death, Life-Threatening)
  Sender: FDA-Public Use
  Company Number: NL-ABBVIE-17K-114-1951069-00

PATIENT
  Age: 84 Year
  Sex: Female

DRUGS (3)
  1. DUODOPA [Suspect]
     Active Substance: CARBIDOPA\LEVODOPA
     Dosage: MD: 11, CD: 3.2, ED: 2
     Route: 050
  2. LACTULOSE. [Concomitant]
     Active Substance: LACTULOSE
     Indication: PRODUCT USED FOR UNKNOWN INDICATION
  3. DUODOPA [Suspect]
     Active Substance: CARBIDOPA\LEVODOPA
     Indication: PARKINSON^S DISEASE
     Dosage: MD: 11, CD: 3.2, ED: 2
     Route: 050
     Dates: start: 20170403

REACTIONS (23)
  - General physical health deterioration [Not Recovered/Not Resolved]
  - Hyperhidrosis [Recovering/Resolving]
  - Muscle rigidity [Not Recovered/Not Resolved]
  - Mobility decreased [Not Recovered/Not Resolved]
  - Musculoskeletal stiffness [Not Recovered/Not Resolved]
  - Bradykinesia [Not Recovered/Not Resolved]
  - Dyskinesia [Recovering/Resolving]
  - Stoma site discharge [Recovered/Resolved]
  - Drug effect variable [Not Recovered/Not Resolved]
  - Death [Fatal]
  - Faeces hard [Not Recovered/Not Resolved]
  - Pain [Not Recovered/Not Resolved]
  - Tremor [Recovering/Resolving]
  - Dizziness [Not Recovered/Not Resolved]
  - Terminal state [Not Recovered/Not Resolved]
  - Asthenia [Not Recovered/Not Resolved]
  - Abnormal dreams [Recovered/Resolved]
  - Feeling hot [Not Recovered/Not Resolved]
  - Hallucination [Recovering/Resolving]
  - Emotional disorder [Unknown]
  - Decreased appetite [Recovered/Resolved]
  - Pain in extremity [Not Recovered/Not Resolved]
  - Stoma site erythema [Recovered/Resolved]

NARRATIVE: CASE EVENT DATE: 201704
